FAERS Safety Report 9931445 (Version 1)
Quarter: 2014Q1

REPORT INFORMATION
  Report Type: Spontaneous
  Country: US (occurrence: US)
  Receive Date: 20140228
  Receipt Date: 20140228
  Transmission Date: 20141002
  Serious: Yes (Hospitalization)
  Sender: FDA-Public Use
  Company Number: US-ACCORD-022083

PATIENT
  Age: 72 Year
  Sex: Male

DRUGS (3)
  1. DONEPEZIL HYDROCHLORIDE [Suspect]
     Indication: DEMENTIA ALZHEIMER^S TYPE
     Dosage: STARTED WITH 5 MG AND INCREASED TO 10 MG 2 WEEK BEFORE
  2. METFORMIN [Concomitant]
  3. LISINOPRIL [Concomitant]

REACTIONS (1)
  - Sick sinus syndrome [Recovered/Resolved]
